FAERS Safety Report 5826309-2 (Version None)
Quarter: 2008Q3

REPORT INFORMATION
  Report Type: 
  Country: None (occurrence: None)
  Receive Date: 20080729
  Receipt Date: 20080714
  Transmission Date: 20090109
  Serious: Yes (Death)
  Sender: FDA-Public Use
  Company Number: IT-MERCK-0807ITA00035

PATIENT
  Age: 65 Year
  Sex: Female

DRUGS (5)
  1. PRIMAXIN [Suspect]
     Indication: PNEUMONIA
     Route: 051
     Dates: start: 20030501, end: 20030501
  2. PRIMAXIN [Suspect]
     Indication: NOCARDIOSIS
     Route: 051
     Dates: start: 20030501, end: 20030501
  3. SULFAMETHOXAZOLE AND TRIMETHOPRIM [Suspect]
     Indication: PNEUMONIA
     Route: 065
     Dates: start: 20030501, end: 20030501
  4. SULFAMETHOXAZOLE AND TRIMETHOPRIM [Suspect]
     Indication: NOCARDIOSIS
     Route: 065
     Dates: start: 20030501, end: 20030501
  5. PREDNISONE [Concomitant]
     Indication: VASCULITIS
     Route: 048
     Dates: start: 20030401

REACTIONS (2)
  - DRUG INEFFECTIVE [None]
  - PNEUMONIA [None]
